FAERS Safety Report 4088703 (Version 4)
Quarter: 2022Q3

REPORT INFORMATION
  Report Type: Spontaneous
  Country: DE (occurrence: DE)
  Receive Date: 20040216
  Receipt Date: 20220713
  Transmission Date: 20221026
  Serious: Yes (Other)
  Sender: FDA-Public Use
  Company Number: DE-GLAXOSMITHKLINE-D0043118A

PATIENT

DRUGS (2)
  1. LAMIVUDINE [Suspect]
     Active Substance: LAMIVUDINE
     Indication: Chronic hepatitis B
     Dosage: 100 MG, U
     Route: 048
     Dates: start: 200302, end: 20030818
  2. CELLCEPT [Suspect]
     Active Substance: MYCOPHENOLATE MOFETIL
     Indication: Product used for unknown indication
     Dosage: 1 DF, BID
     Route: 048
     Dates: start: 200304, end: 20030723

REACTIONS (1)
  - Agranulocytosis [Recovering/Resolving]

NARRATIVE: CASE EVENT DATE: 20030818
